FAERS Safety Report 5677699-5 (Version None)
Quarter: 2008Q1

REPORT INFORMATION
  Report Type: 
  Country: None (occurrence: None)
  Receive Date: 20080324
  Receipt Date: 20080227
  Transmission Date: 20080703
  Serious: No
  Sender: FDA-Public Use
  Company Number: US-BOEHRINGER INGELHEIM GMBH, GERMANY-2008-BP-02904BP

PATIENT
  Sex: Male

DRUGS (5)
  1. FLOMAX [Suspect]
     Indication: BENIGN PROSTATIC HYPERPLASIA
     Route: 048
     Dates: start: 20061001
  2. METOPROLOL TARTRATE [Concomitant]
     Indication: HYPERTENSION
  3. ALTACE [Concomitant]
     Indication: HYPERTENSION
  4. PLAVIX [Concomitant]
  5. ZETIA [Concomitant]
     Indication: BLOOD CHOLESTEROL INCREASED

REACTIONS (3)
  - LIBIDO DECREASED [None]
  - RASH [None]
  - SEMEN VOLUME DECREASED [None]
